FAERS Safety Report 7660409-X (Version None)
Quarter: 2011Q3

REPORT INFORMATION
  Report Type: 
  Country: None (occurrence: None)
  Receive Date: 20110805
  Receipt Date: 20110802
  Transmission Date: 20111222
  Serious: Yes (Other)
  Sender: FDA-Public Use
  Company Number: CN-ASTRAZENECA-2011SE45907

PATIENT
  Age: 50 Year
  Sex: Male

DRUGS (5)
  1. ISOFLURANE [Concomitant]
  2. VECURONIUM BROMIDE [Concomitant]
  3. PENEHYCLIDINE HYDROCHLORIDE [Concomitant]
  4. MIDAZOLAM HCL [Concomitant]
  5. PROPOFOL [Suspect]
     Indication: ANAESTHESIA
     Route: 042

REACTIONS (4)
  - ABNORMAL BEHAVIOUR [None]
  - NIGHTMARE [None]
  - HALLUCINATION [None]
  - DELIRIUM [None]
